FAERS Safety Report 5823949-1 (Version None)
Quarter: 2008Q3

REPORT INFORMATION
  Report Type: 
  Country: None (occurrence: None)
  Receive Date: 20080724
  Receipt Date: 20080716
  Transmission Date: 20090109
  Serious: Yes (Death)
  Sender: FDA-Public Use
  Company Number: SPV1-2008-01512

PATIENT
  Age: 10 Year
  Sex: Male

DRUGS (1)
  1. ELAPRASE [Suspect]
     Indication: MUCOPOLYSACCHARIDOSIS II
     Dosage: 0.5 MG/KG, UNK, IV DRIP
     Route: 041
     Dates: start: 20070904, end: 20080207

REACTIONS (4)
  - NASOPHARYNGITIS [None]
  - PULSE ABSENT [None]
  - UNRESPONSIVE TO STIMULI [None]
  - URTICARIA [None]
